FAERS Safety Report 8510955-1 (Version None)
Quarter: 2012Q3

REPORT INFORMATION
  Report Type: 
  Country: None (occurrence: None)
  Receive Date: 20120716
  Receipt Date: 20120702
  Transmission Date: 20120928
  Serious: Yes (Hospitalization)
  Sender: FDA-Public Use
  Company Number: FI-US-EMD SERONO, INC.-7144784

PATIENT
  Sex: Female

DRUGS (3)
  1. CETROTIDE [Suspect]
     Indication: IN VITRO FERTILISATION
     Route: 058
     Dates: start: 20120311, end: 20120320
  2. FOSTIMON [Concomitant]
     Indication: IN VITRO FERTILISATION
     Route: 058
     Dates: start: 20120307, end: 20120320
  3. MENOPUR [Concomitant]
     Indication: IN VITRO FERTILISATION
     Dosage: 150-225
     Route: 058
     Dates: start: 20120307, end: 20120320

REACTIONS (1)
  - DIPLOPIA [None]
